FAERS Safety Report 17820780 (Version 1)
Quarter: 2020Q2

REPORT INFORMATION
  Report Type: Spontaneous
  Country: TR (occurrence: TR)
  Receive Date: 20200525
  Receipt Date: 20200525
  Transmission Date: 20200714
  Serious: Yes (Life-Threatening)
  Sender: FDA-Public Use
  Company Number: TR-PFIZER INC-2020201213

PATIENT
  Age: 24 Year
  Sex: Female
  Weight: 53 kg

DRUGS (7)
  1. CYCLOSPORINE. [Suspect]
     Active Substance: CYCLOSPORINE
     Indication: IMPETIGO HERPETIFORMIS
  2. AMOXICILLIN AND CLAVULANATE POTASSIUM [Suspect]
     Active Substance: AMOXICILLIN\CLAVULANATE POTASSIUM
     Indication: PUSTULAR PSORIASIS
     Dosage: UNK, DAILY(3X625 MG/DAY)
     Route: 048
     Dates: start: 2019
  3. AMOXICILLIN AND CLAVULANATE POTASSIUM [Suspect]
     Active Substance: AMOXICILLIN\CLAVULANATE POTASSIUM
     Indication: EVIDENCE BASED TREATMENT
  4. METHYLPREDNISOLONE ACETATE. [Suspect]
     Active Substance: METHYLPREDNISOLONE ACETATE
     Indication: PUSTULAR PSORIASIS
     Dosage: 1 MG/KG, DAILY (SYSTEMIC)
     Route: 030
     Dates: start: 2019
  5. AMOXICILLIN AND CLAVULANATE POTASSIUM [Suspect]
     Active Substance: AMOXICILLIN\CLAVULANATE POTASSIUM
     Indication: IMPETIGO HERPETIFORMIS
  6. METHYLPREDNISOLONE ACETATE. [Suspect]
     Active Substance: METHYLPREDNISOLONE ACETATE
     Indication: IMPETIGO HERPETIFORMIS
     Dosage: 32 MG, DAILY (TAPERED TO 32 MG/DAY IN 3 WEEKS)
     Route: 030
     Dates: start: 2019
  7. CYCLOSPORINE. [Suspect]
     Active Substance: CYCLOSPORINE
     Indication: PUSTULAR PSORIASIS
     Dosage: 7.5 MG/KG, DAILY(HIGH-DOSE)
     Route: 048
     Dates: start: 2019

REACTIONS (5)
  - Drug resistance [Recovering/Resolving]
  - Drug ineffective [Recovering/Resolving]
  - Off label use [Unknown]
  - Maternal exposure during pregnancy [Unknown]
  - Product use in unapproved indication [Unknown]

NARRATIVE: CASE EVENT DATE: 2019
